FAERS Safety Report 4872956-4 (Version None)
Quarter: 2006Q1

REPORT INFORMATION
  Report Type: 
  Country: None (occurrence: None)
  Receive Date: 20060105
  Receipt Date: 20050411
  Transmission Date: 20060701
  Serious: No
  Sender: FDA-Public Use
  Company Number: US-BRISTOL-MYERS SQUIBB COMPANY-12930160

PATIENT
  Age: 59 Year
  Sex: Male

DRUGS (1)
  1. SERZONE [Suspect]
     Route: 048
     Dates: start: 19950808, end: 20040801

REACTIONS (4)
  - BRONCHITIS [None]
  - ERECTILE DYSFUNCTION [None]
  - LARYNGITIS [None]
  - PHARYNGOLARYNGEAL PAIN [None]
